FAERS Safety Report 4553647-6 (Version None)
Quarter: 2004Q4

REPORT INFORMATION
  Report Type: 
  Country: None (occurrence: None)
  Receive Date: 20041227
  Receipt Date: 20041021
  Transmission Date: 20050328
  Serious: No
  Sender: FDA-Public Use
  Company Number: 04P-163-0278077-00

PATIENT
  Age: 65 Year
  Sex: Female
  Weight: 65.7716 kg

DRUGS (21)
  1. HUMIRA [Suspect]
     Indication: RHEUMATOID ARTHRITIS
     Dosage: 40 MG, 1 IN 2 WK, SUBCUTANEOUS
     Route: 058
     Dates: start: 20040401
  2. COSOPT [Concomitant]
  3. CYCLOBENZAPRINE [Concomitant]
  4. FUROSEMIDE [Concomitant]
  5. CENSTRIN [Concomitant]
  6. AMLODIPINE BESYLATE [Concomitant]
  7. METHADONE HCL [Concomitant]
  8. ZETIA [Concomitant]
  9. OMEPRAZOLE [Concomitant]
  10. FOLIC ACID [Concomitant]
  11. LATANOPROST [Concomitant]
  12. PAXIL CR [Concomitant]
  13. PROCHLORPERAZINE EDISYLATE [Concomitant]
  14. METHOTREXATE SODIUM [Concomitant]
  15. PREDNISONE [Concomitant]
  16. ALENDRONATE SODIUM [Concomitant]
  17. CELECOXIB [Concomitant]
  18. CLOPIDOGREL BISULFATE [Concomitant]
  19. RAMIPRIL [Concomitant]
  20. ACETYLSALICYLIC ACID SRT [Concomitant]
  21. ATENOLOL [Concomitant]

REACTIONS (2)
  - CHILLS [None]
  - RHINORRHOEA [None]
